FAERS Safety Report 25256247 (Version 1)
Quarter: 2025Q2

REPORT INFORMATION
  Report Type: Spontaneous
  Country: US (occurrence: US)
  Receive Date: 20250430
  Receipt Date: 20250430
  Transmission Date: 20250716
  Serious: No
  Sender: HIKMA
  Company Number: US-HIKMA PHARMACEUTICALS USA INC.-US-H14001-24-10154

PATIENT
  Sex: Female
  Weight: 6.35 kg

DRUGS (2)
  1. PREDNISONE [Suspect]
     Active Substance: PREDNISONE
     Indication: Product used for unknown indication
     Dosage: 5.5 MILLILITER, BID
     Route: 048
     Dates: start: 20241011, end: 20241110
  2. VIGAFYDE [Suspect]
     Active Substance: VIGABATRIN
     Indication: Product used for unknown indication
     Dosage: 2.5 MILLILITER, BID
     Route: 048
     Dates: start: 20241019

REACTIONS (2)
  - Irritability [Recovered/Resolved]
  - Abdominal discomfort [Recovered/Resolved]
